FAERS Safety Report 8042260-4 (Version None)
Quarter: 2012Q1

REPORT INFORMATION
  Report Type: 
  Country: None (occurrence: None)
  Receive Date: 20120112
  Receipt Date: 20120105
  Transmission Date: 20120608
  Serious: Yes (Hospitalization)
  Sender: FDA-Public Use
  Company Number: FR-TEVA-316702ISR

PATIENT
  Sex: Female

DRUGS (10)
  1. ETOPOSIDE [Suspect]
     Route: 042
     Dates: start: 20110617, end: 20110620
  2. CYTARABINE [Suspect]
     Route: 042
     Dates: start: 20110617, end: 20110620
  3. ALKERAN [Suspect]
     Route: 042
     Dates: start: 20110621, end: 20110621
  4. METFORMIN HCL [Concomitant]
  5. BICNU [Suspect]
     Route: 042
     Dates: start: 20110617, end: 20110617
  6. VALACYCLOVIR HYDROCHLORIDE [Concomitant]
  7. IMOVANE [Concomitant]
  8. TRAMADOL HCL [Concomitant]
  9. BICARBONAT [Concomitant]
     Route: 002
  10. DIAMICRON [Concomitant]

REACTIONS (1)
  - GASTROINTESTINAL HAEMORRHAGE [None]
